FAERS Safety Report 7573150-9 (Version None)
Quarter: 2011Q2

REPORT INFORMATION
  Report Type: 
  Country: None (occurrence: None)
  Receive Date: 20110627
  Receipt Date: 20110624
  Transmission Date: 20111010
  Serious: Yes (Hospitalization)
  Sender: FDA-Public Use
  Company Number: US-BRISTOL-MYERS SQUIBB COMPANY-15648942

PATIENT
  Age: 69 Year
  Sex: Male

DRUGS (12)
  1. LYRICA [Concomitant]
     Dates: start: 20080930
  2. ADVAIR DISKUS 100/50 [Concomitant]
     Dates: start: 20100603
  3. HYDROCHLOROTHIAZIDE [Concomitant]
     Dates: start: 20091227
  4. PRILOSEC [Concomitant]
     Dosage: OTC
     Dates: start: 20040330
  5. ZOCOR [Concomitant]
     Dates: start: 20090115
  6. ALBUTEROL SULFATE AUTOHALER [Concomitant]
     Dates: start: 20100310
  7. ASPIRIN [Concomitant]
     Dates: start: 20091015
  8. FLOMAX [Concomitant]
     Dates: start: 20110204
  9. SOTALOL HCL [Concomitant]
     Dates: start: 20020501
  10. FISH OIL [Concomitant]
     Dates: start: 20070628
  11. LISINOPRIL [Concomitant]
     Dates: start: 20090316
  12. ABATACEPT [Suspect]
     Dosage: INTERRUPTED ON 22MAR11
     Route: 058
     Dates: start: 20081216

REACTIONS (1)
  - COLONIC FISTULA [None]
